FAERS Safety Report 9482095 (Version 3)
Quarter: 2013Q4

REPORT INFORMATION
  Report Type: Spontaneous
  Country: BE (occurrence: BE)
  Receive Date: 20130828
  Receipt Date: 20131025
  Transmission Date: 20140711
  Serious: Yes (Hospitalization, Other)
  Sender: FDA-Public Use
  Company Number: PHHY2013BE090664

PATIENT
  Age: 56 Year
  Sex: Female
  Weight: 100 kg

DRUGS (10)
  1. TASIGNA [Suspect]
     Indication: CHRONIC MYELOID LEUKAEMIA
     Dosage: 300 MG, BID
     Route: 048
     Dates: start: 20130802, end: 20130814
  2. SUMATRIPTAN [Concomitant]
     Indication: MIGRAINE
     Route: 058
     Dates: start: 20130811
  3. COVERSYL                                /BEL/ [Concomitant]
     Dosage: 2.5 MG/DAY
  4. L-THYROXINE [Concomitant]
     Dosage: 100 UG, DAILY
  5. CYMBALTA [Concomitant]
     Indication: DEPRESSION
     Dosage: 60 MG/DAY
  6. TOPAMAX [Concomitant]
     Dosage: 150 MG/DAY
  7. OMEPRAZOLE [Concomitant]
     Dosage: 20 MG/DAY
  8. ALPRAZOLAM [Concomitant]
     Dosage: 0.25 MG, OCCASIONALLY
  9. BUSCOPAN [Concomitant]
  10. ASPEGIC [Concomitant]

REACTIONS (4)
  - Pancreatitis [Recovered/Resolved]
  - Diarrhoea [Recovering/Resolving]
  - Back pain [Recovering/Resolving]
  - Migraine [Recovering/Resolving]
